FAERS Safety Report 9738480 (Version 4)
Quarter: 2014Q2

REPORT INFORMATION
  Report Type: Report from Study
  Country: CA (occurrence: CA)
  Receive Date: 20131208
  Receipt Date: 20140625
  Transmission Date: 20141212
  Serious: Yes (Other)
  Sender: FDA-Public Use
  Company Number: PHHY2013CA024572

PATIENT
  Age: 71 Year
  Sex: Male

DRUGS (12)
  1. GLEEVEC [Suspect]
     Indication: GASTROINTESTINAL STROMAL TUMOUR
     Dosage: 200 MG, UNK
     Route: 048
  2. GLEEVEC [Suspect]
     Dosage: 400 MG, QD
  3. GLEEVEC [Suspect]
     Dosage: 200 MG, QD
  4. GLEEVEC [Suspect]
     Dosage: 400 MG, QD
     Route: 048
     Dates: start: 20130326, end: 20130510
  5. GLEEVEC [Suspect]
     Dosage: 200 MG, QD
     Dates: start: 20130723
  6. GLEEVEC [Suspect]
     Dosage: 300 MG, QD
     Route: 048
     Dates: start: 201309
  7. GLEEVEC [Suspect]
     Dosage: 200 MG, QD
     Route: 048
  8. GLEEVEC [Suspect]
     Dosage: 300 MG, QD
     Route: 048
  9. VITALUX                            /00322001/ [Concomitant]
     Dosage: UNK UKN, UNK
  10. RABEPRAZOLE [Concomitant]
     Dosage: UNK UKN, UNK
  11. ANTIHYPERTENSIVES [Concomitant]
     Indication: HYPERTENSION
     Dosage: UNK UKN, UNK
  12. MAGNESIUM SUPPLEMENTS [Concomitant]
     Indication: MUSCLE SPASMS
     Dosage: UNK UKN, UNK

REACTIONS (14)
  - Fall [Unknown]
  - Joint dislocation [Unknown]
  - Muscle rupture [Unknown]
  - Hypersensitivity [Recovered/Resolved]
  - Ocular hyperaemia [Unknown]
  - Toxicity to various agents [Unknown]
  - Seasonal allergy [Unknown]
  - Eye pruritus [Unknown]
  - Lacrimation increased [Unknown]
  - Muscle spasms [Recovering/Resolving]
  - Myalgia [Recovering/Resolving]
  - Pain [Recovered/Resolved]
  - Gout [Unknown]
  - Joint swelling [Unknown]
